FAERS Safety Report 20953100 (Version 1)
Quarter: 2022Q2

REPORT INFORMATION
  Report Type: Spontaneous
  Country: FR (occurrence: FR)
  Receive Date: 20220613
  Receipt Date: 20220613
  Transmission Date: 20220721
  Serious: Yes (Life-Threatening)
  Sender: FDA-Public Use
  Company Number: None

PATIENT
  Age: 60 Year
  Sex: Female
  Weight: 56 kg

DRUGS (3)
  1. TEMODAL [Suspect]
     Active Substance: TEMOZOLOMIDE
     Indication: Neuroendocrine tumour
     Dosage: 400 MILLIGRAM, QD, 400 MG/DAY
     Route: 048
     Dates: start: 20220311, end: 20220325
  2. CAPECITABINE [Suspect]
     Active Substance: CAPECITABINE
     Indication: Neuroendocrine tumour
     Dosage: 2 GRAM, QD, 1G*2/DAY
     Route: 048
     Dates: start: 20220311, end: 20220325
  3. CAPECITABINE [Suspect]
     Active Substance: CAPECITABINE
     Indication: Neuroendocrine tumour
     Dosage: 300 MILLIGRAM, QD, 150MG*2/DAY
     Route: 048
     Dates: start: 20220311, end: 20220325

REACTIONS (1)
  - Bone marrow failure [Not Recovered/Not Resolved]

NARRATIVE: CASE EVENT DATE: 20220330
